FAERS Safety Report 10023951 (Version 2)
Quarter: 2014Q2

REPORT INFORMATION
  Report Type: Report from Study
  Country: US (occurrence: US)
  Receive Date: 20140320
  Receipt Date: 20140603
  Transmission Date: 20141212
  Serious: Yes (Other)
  Sender: FDA-Public Use
  Company Number: US-ASTELLAS-2014US002686

PATIENT
  Age: 56 Year
  Sex: Female

DRUGS (2)
  1. ERLOTINIB [Suspect]
     Indication: LUNG NEOPLASM MALIGNANT
     Route: 048
     Dates: start: 20131217, end: 201401
  2. ERLOTINIB [Suspect]
     Dosage: 75-100MG, ONCE DAILY
     Route: 048
     Dates: start: 20140128, end: 20140318

REACTIONS (12)
  - Dry eye [Recovered/Resolved]
  - Eye pain [Recovered/Resolved]
  - Rash [Recovered/Resolved]
  - Malignant neoplasm progression [Unknown]
  - Eye pruritus [Unknown]
  - Hyperventilation [Unknown]
  - Dry eye [Recovering/Resolving]
  - Sensory disturbance [Recovering/Resolving]
  - Diarrhoea [Not Recovered/Not Resolved]
  - Skin fissures [Recovering/Resolving]
  - Skin discolouration [Recovering/Resolving]
  - Cough [Recovered/Resolved]
